FAERS Safety Report 6734011-8 (Version None)
Quarter: 2010Q2

REPORT INFORMATION
  Report Type: 
  Country: None (occurrence: None)
  Receive Date: 20100520
  Receipt Date: 20100517
  Transmission Date: 20101027
  Serious: Yes (Death, Hospitalization)
  Sender: FDA-Public Use
  Company Number: FR-B.I. PHARMACEUTICALS,INC./RIDGEFIELD-2010-FF-00410FF

PATIENT
  Sex: Male

DRUGS (6)
  1. TAMSULOSIN HCL [Suspect]
     Indication: MICTURITION DISORDER
     Dosage: 0.4 MG
     Route: 048
  2. TYSABRI [Suspect]
     Indication: MULTIPLE SCLEROSIS
     Dosage: ONE 300MG INJECTION EVERY MONTH
     Dates: start: 20070531, end: 20100402
  3. LYRICA [Suspect]
     Indication: PAIN IN EXTREMITY
     Dosage: 600 MG
     Route: 048
     Dates: start: 20090301
  4. RIVOTRIL [Suspect]
     Dosage: 2.5 ML/ML, 5 DROPS AT NIGHT
     Route: 048
  5. ZALDIAR [Suspect]
     Indication: PAIN
     Dosage: 37.5 MG/325MG
     Route: 048
  6. DITROPAN [Suspect]
     Indication: MICTURITION DISORDER
     Dosage: 5 MG
     Route: 048

REACTIONS (7)
  - ACCIDENTAL DEATH [None]
  - AMNESIA [None]
  - ANXIETY [None]
  - CONFUSIONAL STATE [None]
  - DISORIENTATION [None]
  - INSOMNIA [None]
  - ROAD TRAFFIC ACCIDENT [None]
